FAERS Safety Report 9350153 (Version 4)
Quarter: 2013Q3

REPORT INFORMATION
  Report Type: Report from Study
  Country: FR (occurrence: FR)
  Receive Date: 20130617
  Receipt Date: 20130710
  Transmission Date: 20140515
  Serious: Yes (Hospitalization)
  Sender: FDA-Public Use
  Company Number: FR-ROCHE-1236836

PATIENT
  Age: 52 Year
  Sex: Female
  Weight: 55 kg

DRUGS (5)
  1. PEG-INTERFERON ALFA 2A [Suspect]
     Indication: CHRONIC HEPATITIS C
     Route: 058
     Dates: start: 20130309
  2. RIBAVIRIN [Suspect]
     Indication: CHRONIC HEPATITIS C
     Route: 048
     Dates: start: 20130309
  3. TELAPREVIR [Suspect]
     Indication: CHRONIC HEPATITIS C
     Route: 048
     Dates: start: 20130309
  4. FLUOXETINE [Concomitant]
     Indication: DEPRESSION
     Route: 048
     Dates: start: 20130418
  5. SERESTA [Concomitant]
     Indication: ANXIETY
     Route: 048
     Dates: start: 20130418

REACTIONS (7)
  - Malaise [Recovered/Resolved]
  - General physical health deterioration [Unknown]
  - Loss of consciousness [Recovered/Resolved]
  - Anaemia [Unknown]
  - Abdominal pain upper [Unknown]
  - Vomiting [Unknown]
  - Weight decreased [Unknown]
